FAERS Safety Report 11205713 (Version 2)
Quarter: 2015Q3

REPORT INFORMATION
  Report Type: Spontaneous
  Country: BR (occurrence: BR)
  Receive Date: 20150622
  Receipt Date: 20150706
  Transmission Date: 20151125
  Serious: Yes (Hospitalization, Other)
  Sender: FDA-Public Use
  Company Number: BR-SA-2015SA087328

PATIENT
  Sex: Female

DRUGS (13)
  1. LANTUS [Suspect]
     Active Substance: INSULIN GLARGINE
     Indication: DIABETES MELLITUS
     Route: 058
     Dates: start: 1991
  2. BROMOPRIDE [Concomitant]
     Active Substance: BROMOPRIDE
     Indication: GASTRIC DISORDER
     Route: 048
  3. AUTOPEN 24 [Suspect]
     Active Substance: DEVICE
     Indication: DEVICE THERAPY
     Route: 065
     Dates: start: 2005
  4. LOSARTAN. [Concomitant]
     Active Substance: LOSARTAN
     Indication: HYPERTENSION
     Route: 048
  5. ACTONEL [Concomitant]
     Active Substance: RISEDRONATE SODIUM
     Route: 048
  6. OMEPRAZOLE. [Concomitant]
     Active Substance: OMEPRAZOLE
     Indication: GASTRIC DISORDER
     Route: 048
  7. LASIX [Concomitant]
     Active Substance: FUROSEMIDE
     Indication: HYPERTENSION
     Route: 048
  8. CARVEDILOL. [Concomitant]
     Active Substance: CARVEDILOL
     Indication: CARDIAC DISORDER
     Route: 048
  9. MONOCORDIL [Concomitant]
     Active Substance: ISOSORBIDE MONONITRATE
     Indication: CARDIAC DISORDER
     Route: 048
  10. CYSTEX [Concomitant]
     Indication: RENAL DISORDER
  11. FLUOXETINE [Concomitant]
     Active Substance: FLUOXETINE\FLUOXETINE HYDROCHLORIDE
     Indication: ANTIDEPRESSANT THERAPY
     Route: 048
  12. NOVORAPID [Concomitant]
     Active Substance: INSULIN ASPART
     Indication: DIABETES MELLITUS
     Dosage: DOSE: ACCORDING TO MEDICAL SCHEME
     Route: 058
  13. VITALUX [Concomitant]
     Active Substance: MINERALS\VITAMINS
     Indication: ANTIDEPRESSANT THERAPY
     Route: 048

REACTIONS (12)
  - Spinal fracture [Recovering/Resolving]
  - Cardiac hypertrophy [Not Recovered/Not Resolved]
  - Lower limb fracture [Recovering/Resolving]
  - Cardiac disorder [Not Recovered/Not Resolved]
  - Surgery [Unknown]
  - Spinal disorder [Recovering/Resolving]
  - Fall [Not Recovered/Not Resolved]
  - Abasia [Recovering/Resolving]
  - Fall [Recovering/Resolving]
  - Pain [Recovering/Resolving]
  - Kidney infection [Not Recovered/Not Resolved]
  - Blood glucose increased [Recovered/Resolved]

NARRATIVE: CASE EVENT DATE: 2000
